FAERS Safety Report 7340424-6 (Version None)
Quarter: 2011Q1

REPORT INFORMATION
  Report Type: 
  Country: None (occurrence: None)
  Receive Date: 20110309
  Receipt Date: 20110225
  Transmission Date: 20110831
  Serious: Yes (Other)
  Sender: FDA-Public Use
  Company Number: JP-CELGENEUS-087-21880-11010151

PATIENT
  Sex: Female

DRUGS (6)
  1. REVLIMID [Suspect]
     Dosage: 5 MILLIGRAM
     Route: 048
     Dates: start: 20110107, end: 20110127
  2. GLAKAY [Concomitant]
     Dosage: 45 MILLIGRAM
     Route: 048
     Dates: start: 20081226, end: 20101207
  3. REVLIMID [Suspect]
     Dosage: 5 MILLIGRAM
     Route: 048
     Dates: start: 20110209, end: 20110222
  4. EXJADE [Concomitant]
     Indication: ILL-DEFINED DISORDER
     Dosage: 625 MILLIGRAM
     Route: 048
     Dates: start: 20100521, end: 20101207
  5. REVLIMID [Suspect]
     Dosage: 10 MILLIGRAM
     Route: 048
     Dates: start: 20101126, end: 20101209
  6. SENNARIDE [Concomitant]
     Indication: ILL-DEFINED DISORDER
     Dosage: 36 MILLIGRAM
     Route: 048
     Dates: start: 20100521, end: 20101207

REACTIONS (4)
  - ANAEMIA [None]
  - LIVER DISORDER [None]
  - NEUTROPENIA [None]
  - PLATELET COUNT DECREASED [None]
